FAERS Safety Report 26106800 (Version 3)
Quarter: 2025Q4

REPORT INFORMATION
  Report Type: Spontaneous
  Country: JP (occurrence: JP)
  Receive Date: 20251201
  Receipt Date: 20251230
  Transmission Date: 20260118
  Serious: Yes (Hospitalization, Other)
  Sender: CATALYST PHARMA
  Company Number: JP-CATALYSTPHARMACEUTICALPARTNERS-JP-CATA-25-01835

PATIENT

DRUGS (7)
  1. FYCOMPA [Suspect]
     Active Substance: PERAMPANEL
     Indication: Epilepsy
     Dosage: 0.1 GRAM(S) (0.1 GRAM(S), 1 IN 1 DAY)
     Route: 048
     Dates: start: 20230915, end: 202506
  2. FYCOMPA [Suspect]
     Active Substance: PERAMPANEL
     Dosage: 0.1 MILLIGRAM(S) (0.1 MILLIGRAM(S), 1 IN 1 DAY)
     Route: 048
     Dates: start: 202506, end: 20251009
  3. INOVELON [Concomitant]
     Active Substance: RUFINAMIDE
     Indication: Product used for unknown indication
     Dosage: DOSE AND FREQUENCY WERE UNKNOWN
     Route: 048
  4. POTASSIUM BROMIDE [Concomitant]
     Active Substance: POTASSIUM BROMIDE
     Indication: Product used for unknown indication
     Dosage: DOSE AND FREQUENCY WERE UNKNOWN
     Route: 048
  5. LAMICTAL [Concomitant]
     Active Substance: LAMOTRIGINE
     Indication: Product used for unknown indication
     Dosage: DOSE AND FREQUENCY WERE UNKNOWN
     Route: 048
  6. LEVETIRACETAM [Concomitant]
     Active Substance: LEVETIRACETAM
     Indication: Product used for unknown indication
     Dosage: DOSE AND FREQUENCY WERE UNKNOWN
     Route: 048
  7. LENVIMA [Concomitant]
     Active Substance: LENVATINIB
     Indication: Product used for unknown indication
     Dosage: UNKNOWN
     Route: 065

REACTIONS (11)
  - Cholangitis [Unknown]
  - Enterocolitis haemorrhagic [Recovered/Resolved]
  - Pancreatitis acute [Unknown]
  - Melaena [Recovered/Resolved]
  - Anaemia [Unknown]
  - Circulatory collapse [Unknown]
  - Pyrexia [Unknown]
  - Colitis [Unknown]
  - Weight decreased [Unknown]
  - Lymphocyte stimulation test positive [Unknown]
  - Product dose omission issue [Unknown]

NARRATIVE: CASE EVENT DATE: 20230901
